APPROVED DRUG PRODUCT: PROCHLORPERAZINE EDISYLATE
Active Ingredient: PROCHLORPERAZINE EDISYLATE
Strength: EQ 5MG BASE/ML
Dosage Form/Route: INJECTABLE;INJECTION
Application: A089703 | Product #001
Applicant: HOSPIRA INC
Approved: Apr 7, 1988 | RLD: No | RS: No | Type: DISCN